FAERS Safety Report 5279014-8 (Version None)
Quarter: 2007Q1

REPORT INFORMATION
  Report Type: 
  Country: None (occurrence: None)
  Receive Date: 20070328
  Receipt Date: 20070131
  Transmission Date: 20070707
  Serious: No
  Sender: FDA-Public Use
  Company Number: US-AMGEN-KDL209398

PATIENT
  Sex: Female

DRUGS (5)
  1. NEULASTA [Suspect]
     Indication: CHEMOTHERAPY
     Route: 058
     Dates: start: 20070124
  2. ADRIAMYCIN PFS [Concomitant]
  3. CYCLOPHOSPHAMIDE [Concomitant]
  4. WELLBUTRIN [Concomitant]
  5. VITAMIN CAP [Concomitant]

REACTIONS (5)
  - BACK PAIN [None]
  - DIARRHOEA [None]
  - DYSURIA [None]
  - FULL BLOOD COUNT DECREASED [None]
  - RECTAL HAEMORRHAGE [None]
